FAERS Safety Report 10023399 (Version 1)
Quarter: 2014Q1

REPORT INFORMATION
  Report Type: Spontaneous
  Country: BR (occurrence: BR)
  Receive Date: 20140320
  Receipt Date: 20140320
  Transmission Date: 20141002
  Serious: Yes (Hospitalization, Other)
  Sender: FDA-Public Use
  Company Number: BR-AMGEN-BRASP2014019273

PATIENT
  Age: 55 Year
  Sex: Female
  Weight: 66 kg

DRUGS (4)
  1. ENBREL [Suspect]
     Indication: RHEUMATOID ARTHRITIS
     Dosage: 50 MG, ONCE WEEKLY
     Route: 058
     Dates: start: 2013
  2. PREDNISONE [Concomitant]
     Dosage: 2 TABLETS OF 50MG (100 MG), DAILY
     Route: 048
  3. DICLOFENAC POTASSIUM [Concomitant]
     Dosage: 75 MG (1 TABLET), 2X/DAY
     Route: 048
  4. OMEPRAZOLE [Concomitant]
     Dosage: 20 MG (1 TABLET), 1X/DAY
     Route: 048

REACTIONS (1)
  - Rheumatoid arthritis [Unknown]
